FAERS Safety Report 4772794-7 (Version None)
Quarter: 2005Q3

REPORT INFORMATION
  Report Type: 
  Country: None (occurrence: None)
  Receive Date: 20050915
  Receipt Date: 20050915
  Transmission Date: 20060218
  Serious: Yes (Hospitalization)
  Sender: FDA-Public Use
  Company Number: None

PATIENT
  Age: 68 Year
  Sex: Female

DRUGS (11)
  1. MORPHINE [Suspect]
     Indication: PAIN
     Dosage: 23 MG IV PER PCA
     Route: 042
     Dates: start: 20050618
  2. DILAUDID [Suspect]
     Indication: PAIN
     Dosage: 1 MG (PACU) + 1.6G ON FLOOR
     Dates: start: 20050617, end: 20050618
  3. TRICOR [Concomitant]
  4. ELAVIL [Concomitant]
  5. SYNTHROID [Concomitant]
  6. LIPITOR [Concomitant]
  7. NTG SL [Concomitant]
  8. URSODIOL [Concomitant]
  9. ASPIRIN [Concomitant]
  10. REGLAN [Concomitant]
  11. VERSED [Concomitant]

REACTIONS (3)
  - LOSS OF CONSCIOUSNESS [None]
  - RESPIRATORY DISTRESS [None]
  - SEDATION [None]
